FAERS Safety Report 5844613-9 (Version None)
Quarter: 2008Q3

REPORT INFORMATION
  Report Type: 
  Country: None (occurrence: None)
  Receive Date: 20080812
  Receipt Date: 20080729
  Transmission Date: 20090109
  Serious: Yes (Hospitalization, Other)
  Sender: FDA-Public Use
  Company Number: VNL_01151_2008

PATIENT
  Age: 76 Year
  Sex: Male

DRUGS (12)
  1. APO-GO (APO-GO PFS 5 MG/ML SOLUTION FOR INFUSION IN PRE-FILLED SYRINGE [Suspect]
     Indication: PARKINSON'S DISEASE
     Dosage: 4 MG PER HOUR FOR 6 DAYS SUBCUTANEOUS
     Route: 058
     Dates: start: 20080616, end: 20080621
  2. APOMORPHINE (APOMORPHINE) [Suspect]
     Indication: PARKINSON'S DISEASE
     Dosage: 3 MG PER HOUR DFOR 1 WEEK 1 DAY SUBCUTANEOUS
     Route: 058
     Dates: start: 20080609, end: 20080616
  3. ASPIRIN [Concomitant]
  4. CANDESARTAN [Concomitant]
  5. DOMPERIDONE [Concomitant]
  6. IBUPROFEN [Concomitant]
  7. ACETAMINOPHEN [Concomitant]
  8. ROPINIROLE [Concomitant]
  9. SIMVASTATIN [Concomitant]
  10. SINEMET [Concomitant]
  11. TRAMADOL HCL [Concomitant]
  12. VERAPAMIL [Concomitant]

REACTIONS (5)
  - CONFUSIONAL STATE [None]
  - HYPOTENSION [None]
  - JOINT SWELLING [None]
  - RASH [None]
  - SOMNOLENCE [None]
